FAERS Safety Report 9892291 (Version 1)
Quarter: 2014Q1

REPORT INFORMATION
  Report Type: Spontaneous
  Country: GB (occurrence: GB)
  Receive Date: 20140212
  Receipt Date: 20140212
  Transmission Date: 20141002
  Serious: Yes (Other)
  Sender: FDA-Public Use
  Company Number: CHNY2014GB000714

PATIENT
  Sex: 0

DRUGS (3)
  1. SCOPODERM TTS [Suspect]
     Route: 062
     Dates: start: 20131105
  2. LEVOTHYROXINE [Concomitant]
     Dates: start: 20131009, end: 20140127
  3. HYOSCINE HYDROBROMIDE [Concomitant]
     Dates: start: 20131009, end: 20131119

REACTIONS (2)
  - Rash erythematous [Unknown]
  - Pruritus [Unknown]
